FAERS Safety Report 7214529-4 (Version None)
Quarter: 2011Q1

REPORT INFORMATION
  Report Type: 
  Country: None (occurrence: None)
  Receive Date: 20110107
  Receipt Date: 20110106
  Transmission Date: 20110831
  Serious: Yes (Death, Other)
  Sender: FDA-Public Use
  Company Number: BE-SANOFI-AVENTIS-2011SA000929

PATIENT
  Age: 82 Year
  Sex: Female

DRUGS (2)
  1. CLEXANE [Suspect]
     Route: 065
  2. ANTIHYPERTENSIVES [Concomitant]

REACTIONS (2)
  - MUSCLE HAEMORRHAGE [None]
  - DEATH [None]
